FAERS Safety Report 10541586 (Version 2)
Quarter: 2014Q4

REPORT INFORMATION
  Report Type: Spontaneous
  Country: US (occurrence: US)
  Receive Date: 20141024
  Receipt Date: 20141105
  Transmission Date: 20150529
  Serious: Yes (Hospitalization)
  Sender: FDA-Public Use
  Company Number: US-BAYER-2014-153049

PATIENT
  Age: 58 Year
  Sex: Male

DRUGS (2)
  1. CIPRO [Suspect]
     Active Substance: CIPROFLOXACIN HYDROCHLORIDE
     Indication: PROSTATE INFECTION
     Dosage: 500 MG, QD
     Dates: start: 201403
  2. CIPRO [Suspect]
     Active Substance: CIPROFLOXACIN HYDROCHLORIDE
     Indication: PROSTATE INFECTION
     Dosage: 500 MG, QD
     Dates: start: 201406

REACTIONS (7)
  - Rash morbilliform [None]
  - Abdominal pain [None]
  - Feeling abnormal [None]
  - Pruritus [None]
  - Burning sensation [None]
  - Nausea [None]
  - Erythema [None]

NARRATIVE: CASE EVENT DATE: 201406
